FAERS Safety Report 21082870 (Version 1)
Quarter: 2022Q3

REPORT INFORMATION
  Report Type: Spontaneous
  Country: US (occurrence: US)
  Receive Date: 20220714
  Receipt Date: 20220714
  Transmission Date: 20221027
  Serious: Yes (Death, Other)
  Sender: FDA-Public Use
  Company Number: US-BRISTOL-MYERS SQUIBB COMPANY-2022-072539

PATIENT
  Age: 75 Year
  Sex: Male

DRUGS (1)
  1. OPDIVO [Suspect]
     Active Substance: NIVOLUMAB
     Indication: Pleural mesothelioma
     Dosage: DOSE : 250MG;     FREQ : EVERY 2 WEEKS?ROUTE: INFUSION
     Route: 065

REACTIONS (2)
  - Death [Fatal]
  - Intentional product use issue [Unknown]
